FAERS Safety Report 9689043 (Version 1)
Quarter: 2013Q4

REPORT INFORMATION
  Report Type: Spontaneous
  Country: DE (occurrence: DE)
  Receive Date: 20131114
  Receipt Date: 20131114
  Transmission Date: 20140711
  Serious: Yes (Other)
  Sender: FDA-Public Use
  Company Number: PHHY2013DE127033

PATIENT
  Age: 6 Year
  Sex: Female

DRUGS (4)
  1. CICLOSPORIN [Suspect]
  2. EVEROLIMUS [Suspect]
  3. PREDNISONE [Suspect]
  4. BASILIXIMAB [Concomitant]
     Indication: PROPHYLAXIS AGAINST GRAFT VERSUS HOST DISEASE

REACTIONS (4)
  - Post transplant lymphoproliferative disorder [Recovered/Resolved]
  - Epstein-Barr virus infection [Recovered/Resolved]
  - Lip swelling [Recovered/Resolved]
  - Lymphadenopathy [Recovered/Resolved]
